FAERS Safety Report 6972635-3 (Version None)
Quarter: 2010Q3

REPORT INFORMATION
  Report Type: 
  Country: None (occurrence: None)
  Receive Date: 20100909
  Receipt Date: 20100827
  Transmission Date: 20110219
  Serious: Yes (Hospitalization)
  Sender: FDA-Public Use
  Company Number: US-CELGENEUS-163-21880-10071101

PATIENT
  Sex: Male

DRUGS (7)
  1. REVLIMID [Suspect]
     Route: 048
     Dates: start: 20100129, end: 20100611
  2. OFATUMUMAB [Suspect]
     Route: 051
  3. CALCIUM [Concomitant]
     Route: 048
  4. CIPROFLOXACIN HCL [Concomitant]
     Indication: ANTI-INFECTIVE THERAPY
     Route: 048
  5. HYTRIN [Concomitant]
     Route: 048
  6. PRILOSEC [Concomitant]
     Route: 048
  7. VITAMIN D [Concomitant]
     Indication: VITAMIN SUPPLEMENTATION
     Route: 048

REACTIONS (1)
  - HERNIA REPAIR [None]
